FAERS Safety Report 5615358-5 (Version None)
Quarter: 2008Q1

REPORT INFORMATION
  Report Type: 
  Country: None (occurrence: None)
  Receive Date: 20080201
  Receipt Date: 20080124
  Transmission Date: 20080703
  Serious: Yes (Other)
  Sender: FDA-Public Use
  Company Number: 2008SP001869

PATIENT
  Sex: Female

DRUGS (8)
  1. RIBAVIRIN [Suspect]
     Indication: HEPATITIS C
     Dosage: ; PO
     Route: 048
     Dates: start: 20051114, end: 20061128
  2. NEUPOGEN [Suspect]
     Indication: NEUTROPENIA
     Dates: start: 20060101, end: 20061215
  3. PEGINTERFERON ALFA-2A [Suspect]
     Indication: HEPATITIS C
     Dosage: ; SC
     Route: 058
     Dates: start: 20051114, end: 20061128
  4. CITALOPRAM HYDROBROMIDE [Concomitant]
  5. LORAZEPAM [Concomitant]
  6. VITAMIN [Concomitant]
  7. GLUCOSAMINE [Concomitant]
  8. CALCIUM [Concomitant]

REACTIONS (25)
  - ABNORMAL BEHAVIOUR [None]
  - ARTHRALGIA [None]
  - ASTHENIA [None]
  - BLOOD THYROID STIMULATING HORMONE INCREASED [None]
  - CYSTITIS [None]
  - EXOSTOSIS [None]
  - EYELID OEDEMA [None]
  - HYPOTHYROIDISM [None]
  - INAPPROPRIATE AFFECT [None]
  - INFECTION [None]
  - INFLAMMATION [None]
  - INJECTION SITE BRUISING [None]
  - INSOMNIA [None]
  - MIGRAINE [None]
  - MYALGIA [None]
  - NEUTROPENIA [None]
  - PLATELET COUNT DECREASED [None]
  - PRURITUS [None]
  - RASH [None]
  - RED BLOOD CELL COUNT DECREASED [None]
  - RED BLOOD CELL COUNT INCREASED [None]
  - THYROID DISORDER [None]
  - WEIGHT DECREASED [None]
  - WHITE BLOOD CELL COUNT DECREASED [None]
  - WHITE BLOOD CELL COUNT INCREASED [None]
